FAERS Safety Report 15362223 (Version 1)
Quarter: 2018Q3

REPORT INFORMATION
  Report Type: Spontaneous
  Country: CN (occurrence: CN)
  Receive Date: 20180907
  Receipt Date: 20180907
  Transmission Date: 20181010
  Serious: Yes (Other)
  Sender: FDA-Public Use
  Company Number: CN-PFIZER INC-2018359048

PATIENT
  Age: 66 Year
  Sex: Female

DRUGS (6)
  1. SODIUM CHLORIDE. [Concomitant]
     Active Substance: SODIUM CHLORIDE
     Indication: VEHICLE SOLUTION USE
     Dosage: 500 ML, 1X/DAY
     Route: 041
     Dates: start: 20180707, end: 20180709
  2. VITAMIN C [ASCORBIC ACID] [Concomitant]
     Indication: SUPPLEMENTATION THERAPY
     Dosage: 2 G, 1X/DAY
     Route: 041
     Dates: start: 20180707, end: 20180709
  3. CELECOXIB. [Suspect]
     Active Substance: CELECOXIB
     Indication: PAIN
     Dosage: 0.2 G, 2X/DAY
     Route: 048
     Dates: start: 20180707, end: 20180710
  4. POTASSIUM CHLORIDE. [Concomitant]
     Active Substance: POTASSIUM CHLORIDE
     Indication: HYPOKALAEMIA
     Dosage: 15 ML, 1X/DAY
     Route: 041
     Dates: start: 20180707, end: 20180709
  5. VITAMIN B6 [Concomitant]
     Active Substance: PYRIDOXINE HYDROCHLORIDE
     Indication: SUPPLEMENTATION THERAPY
     Dosage: 0.1 G, 1X/DAY
     Route: 041
     Dates: start: 20180707, end: 20180709
  6. BU DA XIU [Concomitant]
     Indication: HYPOKALAEMIA
     Dosage: 1 G, 2X/DAY
     Route: 048
     Dates: start: 20180707, end: 20180713

REACTIONS (2)
  - Abdominal distension [Recovering/Resolving]
  - Nausea [Recovering/Resolving]

NARRATIVE: CASE EVENT DATE: 20180708
